FAERS Safety Report 12317951 (Version 2)
Quarter: 2016Q2

REPORT INFORMATION
  Report Type: Spontaneous
  Country: US (occurrence: US)
  Receive Date: 20160429
  Receipt Date: 20160510
  Transmission Date: 20160815
  Serious: No
  Sender: FDA-Public Use
  Company Number: US-GLAXOSMITHKLINE-US2016052249

PATIENT
  Age: 74 Year
  Sex: Male

DRUGS (10)
  1. DOXYCYCLINE. [Concomitant]
     Active Substance: DOXYCYCLINE
  2. FLUTICASONE NASAL [Concomitant]
     Active Substance: FLUTICASONE\FLUTICASONE PROPIONATE
  3. PROAIR HFA [Concomitant]
     Active Substance: ALBUTEROL SULFATE
  4. ZITHROMAX [Concomitant]
     Active Substance: AZITHROMYCIN DIHYDRATE
  5. COMBIVENT [Concomitant]
     Active Substance: ALBUTEROL SULFATE\IPRATROPIUM BROMIDE
  6. ADVAIR HFA [Suspect]
     Active Substance: FLUTICASONE PROPIONATE\SALMETEROL XINAFOATE
     Indication: PRODUCT USED FOR UNKNOWN INDICATION
     Dosage: 230/21 MCG 1 PUFF(S), BID
     Route: 055
     Dates: start: 20160418
  7. CROMOLYN SODIUM OPHTHALMIC [Concomitant]
  8. BREO ELLIPTA [Suspect]
     Active Substance: FLUTICASONE FUROATE\VILANTEROL TRIFENATATE
     Indication: NASOPHARYNGITIS
     Dosage: UNK, QD
     Route: 055
     Dates: start: 20160408, end: 201604
  9. CROMOLYN SODIUM. [Concomitant]
     Active Substance: CROMOLYN SODIUM
     Dosage: EYE DROPS
  10. VALIUM [Concomitant]
     Active Substance: DIAZEPAM

REACTIONS (16)
  - Lip dry [Unknown]
  - Oropharyngeal pain [Unknown]
  - Product use issue [Unknown]
  - Dry mouth [Unknown]
  - Nasopharyngitis [Not Recovered/Not Resolved]
  - Wheezing [Not Recovered/Not Resolved]
  - Inappropriate schedule of drug administration [Unknown]
  - Fatigue [Not Recovered/Not Resolved]
  - Throat irritation [Not Recovered/Not Resolved]
  - Dysgeusia [Unknown]
  - Dysphonia [Not Recovered/Not Resolved]
  - Cough [Not Recovered/Not Resolved]
  - Drug dose omission [Unknown]
  - Drug prescribing error [Unknown]
  - Chills [Unknown]
  - Underdose [Unknown]

NARRATIVE: CASE EVENT DATE: 201604
